FAERS Safety Report 26115883 (Version 1)
Quarter: 2025Q4

REPORT INFORMATION
  Report Type: Spontaneous
  Country: US (occurrence: None)
  Receive Date: 20251203
  Receipt Date: 20251203
  Transmission Date: 20260118
  Serious: Yes (Hospitalization, Other)
  Sender: APOTEX
  Company Number: US-APOTEX-2025AP033255

PATIENT
  Age: 58 Year
  Sex: Male

DRUGS (1)
  1. ZIPRASIDONE [Suspect]
     Active Substance: ZIPRASIDONE
     Indication: Schizophrenia
     Dosage: UNK, PRN
     Route: 065

REACTIONS (1)
  - Diabetic ketoacidosis [Recovered/Resolved]
